FAERS Safety Report 12875605 (Version 3)
Quarter: 2016Q4

REPORT INFORMATION
  Report Type: Spontaneous
  Country: US (occurrence: US)
  Receive Date: 20161024
  Receipt Date: 20161212
  Transmission Date: 20170207
  Serious: No
  Sender: FDA-Public Use
  Company Number: US-BAYER-2016-198344

PATIENT
  Age: 89 Year
  Sex: Male
  Weight: 60.32 kg

DRUGS (9)
  1. LEVETIRACETAM. [Concomitant]
     Active Substance: LEVETIRACETAM
  2. TOPAMAX [Concomitant]
     Active Substance: TOPIRAMATE
  3. AMLODIPINE [Concomitant]
     Active Substance: AMLODIPINE BESYLATE
  4. MIRALAX [Suspect]
     Active Substance: POLYETHYLENE GLYCOL 3350
     Indication: GASTROINTESTINAL DISORDER
     Dosage: 1 DF, UNK
     Dates: start: 2016, end: 2016
  5. BAYER GENUINE ASPIRIN [Suspect]
     Active Substance: ASPIRIN
     Dosage: UNK
  6. PHILLIPS^ LAXATIVE DIETARY SUPPLEMENT [Suspect]
     Active Substance: MAGNESIUM OXIDE
     Indication: GASTROINTESTINAL DISORDER
     Dosage: UNK
     Dates: start: 20161018, end: 20161019
  7. L-THYROXINE [Concomitant]
     Active Substance: LEVOTHYROXINE
  8. PANTOPRAZOLE [Concomitant]
     Active Substance: PANTOPRAZOLE SODIUM
  9. MIRALAX [Suspect]
     Active Substance: POLYETHYLENE GLYCOL 3350
     Indication: GASTROINTESTINAL DISORDER
     Dosage: 2 DF, QD
     Route: 048

REACTIONS (9)
  - Product use issue [Unknown]
  - Anal incontinence [Recovered/Resolved]
  - Drug effect delayed [Unknown]
  - Diarrhoea [Recovered/Resolved]
  - Drug ineffective [None]
  - Malaise [Unknown]
  - Product use issue [None]
  - Gastrointestinal motility disorder [Unknown]
  - Nausea [Not Recovered/Not Resolved]

NARRATIVE: CASE EVENT DATE: 2016
